FAERS Safety Report 13565390 (Version 2)
Quarter: 2017Q2

REPORT INFORMATION
  Report Type: Spontaneous
  Country: BR (occurrence: BR)
  Receive Date: 20170519
  Receipt Date: 20170605
  Transmission Date: 20170830
  Serious: Yes (Other)
  Sender: FDA-Public Use
  Company Number: PHHY2017BR069873

PATIENT
  Sex: Male
  Weight: 91 kg

DRUGS (5)
  1. CAPTOPRIL. [Suspect]
     Active Substance: CAPTOPRIL
     Indication: HYPERTENSION
     Dosage: 25 MG IN THE MORNING AND 25 MG AT NIGHT
     Route: 048
     Dates: start: 201702
  2. CLONAZEPAM. [Concomitant]
     Active Substance: CLONAZEPAM
     Indication: ANEURYSM
     Dosage: 2 MG, TID
     Route: 048
  3. AAS [Concomitant]
     Active Substance: ASPIRIN
     Indication: COAGULOPATHY
     Dosage: 100 MG, QD
     Route: 048
  4. AMITRIL [Concomitant]
     Active Substance: AMITRIPTYLINE HYDROCHLORIDE
     Indication: ANEURYSM
     Dosage: HE SAID THAT HE USES MORE THAN 1 PER DAY, HE DOES NOT REMEMBER CORRECTLY
     Route: 048
  5. AMLODIPINE [Concomitant]
     Active Substance: AMLODIPINE BESYLATE
     Indication: HYPERTENSION
     Dosage: 5 MG, BID
     Route: 048

REACTIONS (3)
  - Pain in extremity [Recovering/Resolving]
  - Gait disturbance [Unknown]
  - Cough [Recovered/Resolved]
